FAERS Safety Report 20330385 (Version 2)
Quarter: 2022Q1

REPORT INFORMATION
  Report Type: Spontaneous
  Country: CA (occurrence: CA)
  Receive Date: 20220113
  Receipt Date: 20220120
  Transmission Date: 20220423
  Serious: Yes (Other)
  Sender: FDA-Public Use
  Company Number: CA-BAUSCH-BL-2022-000876

PATIENT
  Age: 46 Year
  Sex: Male

DRUGS (6)
  1. DILTIAZEM [Suspect]
     Active Substance: DILTIAZEM
     Indication: Arrhythmia supraventricular
     Route: 065
  2. FLECAINIDE [Suspect]
     Active Substance: FLECAINIDE
     Indication: Arrhythmia supraventricular
     Route: 065
  3. METOPROLOL [Concomitant]
     Active Substance: METOPROLOL
     Indication: Extrasystoles
  4. METOPROLOL [Concomitant]
     Active Substance: METOPROLOL
     Indication: Atrial tachycardia
  5. SOTALOL [Concomitant]
     Active Substance: SOTALOL
     Indication: Extrasystoles
  6. SOTALOL [Concomitant]
     Active Substance: SOTALOL
     Indication: Atrial tachycardia

REACTIONS (1)
  - Brugada syndrome [Recovered/Resolved]
